FAERS Safety Report 19287356 (Version 1)
Quarter: 2021Q2

REPORT INFORMATION
  Report Type: Spontaneous
  Country: US (occurrence: US)
  Receive Date: 20210522
  Receipt Date: 20210522
  Transmission Date: 20210717
  Serious: No
  Sender: FDA-Public Use
  Company Number: US-ELI_LILLY_AND_COMPANY-US202105009376

PATIENT
  Age: 49 Year
  Sex: Female

DRUGS (1)
  1. TALTZ [Suspect]
     Active Substance: IXEKIZUMAB
     Indication: ANKYLOSING SPONDYLITIS
     Dosage: 80 MG, UNKNOWN
     Route: 065

REACTIONS (6)
  - Injection site pain [Unknown]
  - Psoriasis [Unknown]
  - Skin disorder [Unknown]
  - Drug ineffective [Unknown]
  - Eczema [Unknown]
  - Swelling [Unknown]

NARRATIVE: CASE EVENT DATE: 202104
